FAERS Safety Report 17037565 (Version 1)
Quarter: 2019Q4

REPORT INFORMATION
  Report Type: Spontaneous
  Country: US (occurrence: US)
  Receive Date: 20191016
  Receipt Date: 20191016
  Transmission Date: 20200122
  Serious: Yes (Death)
  Sender: FDA-Public Use
  Company Number: None

PATIENT
  Age: 82 Year
  Sex: Male

DRUGS (1)
  1. POMALYST [Suspect]
     Active Substance: POMALIDOMIDE
     Indication: PLASMA CELL MYELOMA
     Route: 048
     Dates: start: 20160425, end: 201909

REACTIONS (5)
  - General physical health deterioration [None]
  - Anaemia [None]
  - Hip fracture [None]
  - Gastrointestinal haemorrhage [None]
  - Cardiac arrest [None]

NARRATIVE: CASE EVENT DATE: 20190928
